FAERS Safety Report 9130834 (Version 4)
Quarter: 2013Q3

REPORT INFORMATION
  Report Type: Spontaneous
  Country: BE (occurrence: BE)
  Receive Date: 20130301
  Receipt Date: 20130730
  Transmission Date: 20140515
  Serious: Yes (Death, Hospitalization, Other)
  Sender: FDA-Public Use
  Company Number: BE-PFIZER INC-2013069283

PATIENT
  Age: 54 Year
  Sex: Female

DRUGS (10)
  1. SUTENT [Suspect]
     Indication: GASTROINTESTINAL STROMAL TUMOUR
     Dosage: 50 MG, 1X/DAY
     Route: 048
     Dates: start: 20101230, end: 201106
  2. SUTENT [Suspect]
     Dosage: 37.5 MG, CYCLIC, 4 WEEK ON, 2 WEEK OFF
     Route: 048
     Dates: start: 201106, end: 201204
  3. SUTENT [Suspect]
     Dosage: 12.5 MG, 2X/DAY
     Route: 048
     Dates: start: 201204, end: 201301
  4. AMLOR [Concomitant]
     Dosage: 10 MG, 1X/DAY
     Route: 048
  5. DUROGESIC [Concomitant]
     Dosage: 2 PATCHES (ONE OF 12?G/H AND ONE OF 25?G/H), CYCLIC, EVERY 3 DAYS
     Route: 062
  6. EMCONCOR [Concomitant]
     Dosage: 5 MG, 2X/DAY, AS NEEDED
     Route: 048
  7. OXYNORM [Concomitant]
     Dosage: 5 MG, AS NEEDED
     Route: 048
  8. PANTOMED [Concomitant]
     Dosage: 20 MG, 1X/DAY
     Route: 048
  9. ZYRTEC [Concomitant]
     Dosage: 10 MG, AS NEEDED
     Route: 048
  10. L-THYROXIN [Concomitant]
     Dosage: 25 UG, 1X/DAY
     Route: 048

REACTIONS (5)
  - Venoocclusive liver disease [Fatal]
  - Hepatic failure [Fatal]
  - Disease progression [Fatal]
  - Gastrointestinal stromal tumour [Fatal]
  - Hepatic encephalopathy [Not Recovered/Not Resolved]
